FAERS Safety Report 8510493-6 (Version None)
Quarter: 2012Q3

REPORT INFORMATION
  Report Type: 
  Country: None (occurrence: None)
  Receive Date: 20120716
  Receipt Date: 20120703
  Transmission Date: 20120928
  Serious: Yes (Death, Hospitalization)
  Sender: FDA-Public Use
  Company Number: JP-AMGEN-JPNSP2012030186

PATIENT
  Age: 69 Year
  Sex: Female

DRUGS (10)
  1. EPADEL S [Concomitant]
     Indication: DYSLIPIDAEMIA
     Dosage: 900 MG, BID
     Route: 048
  2. LOSARTAN POTASSIUM [Concomitant]
     Indication: HYPERTENSION
     Dosage: UNK
     Route: 048
  3. RANMARK [Suspect]
     Indication: METASTASES TO BONE
     Dosage: 120 MG, UNK
     Route: 058
     Dates: start: 20120501
  4. ANPLAG [Concomitant]
     Indication: SCLERODERMA
     Dosage: 100 MG, TID
     Route: 048
  5. CLINORIL [Concomitant]
     Indication: SCLERODERMA
     Dosage: 100 MG, BID
     Route: 048
  6. FAMOTIDINE [Concomitant]
     Indication: GASTRITIS PROPHYLAXIS
     Dosage: 20 MG, BID
     Route: 048
  7. RANMARK [Suspect]
     Route: 058
     Dates: start: 20120501, end: 20120501
  8. JUVELA N [Concomitant]
     Indication: SCLERODERMA
     Dosage: 200 MG, TID
     Route: 048
  9. PREDNISOLONE [Suspect]
     Indication: INTERSTITIAL LUNG DISEASE
     Route: 048
  10. ACTONEL [Concomitant]
     Indication: OSTEOPOROSIS
     Dosage: 2.5 MG, QD
     Route: 048

REACTIONS (2)
  - HYPOCALCAEMIA [None]
  - CEREBRAL INFARCTION [None]
